FAERS Safety Report 21116966 (Version 1)
Quarter: 2022Q3

REPORT INFORMATION
  Report Type: Spontaneous
  Country: FR (occurrence: FR)
  Receive Date: 20220722
  Receipt Date: 20220722
  Transmission Date: 20221027
  Serious: Yes (Life-Threatening)
  Sender: FDA-Public Use
  Company Number: None

PATIENT
  Age: 24 Year
  Sex: Male
  Weight: 87 kg

DRUGS (6)
  1. ETOPOSIDE [Interacting]
     Active Substance: ETOPOSIDE
     Indication: Hodgkin^s disease
     Dosage: 1200MG, FREQUENCY TIME 1CYCLICAL, 23DAYS
     Route: 065
     Dates: start: 20211122, end: 20211215
  2. VINCRISTINE SULFATE [Interacting]
     Active Substance: VINCRISTINE SULFATE
     Indication: Hodgkin^s disease
     Dosage: 2MG, FREQUENCY TIME 1CYCLICAL, DURATION 21DAYS
     Route: 065
     Dates: start: 20211122, end: 20211213
  3. DOXORUBICIN [Interacting]
     Active Substance: DOXORUBICIN
     Indication: Hodgkin^s disease
     Dosage: 70MG, FREQUENCY TIME 1CYCLICAL, DURATION 21DAYS
     Route: 065
     Dates: start: 20211122, end: 20211213
  4. BLEOMYCIN SULFATE [Interacting]
     Active Substance: BLEOMYCIN SULFATE
     Indication: Hodgkin^s disease
     Dosage: 20MG, FREQUENCY TIME 1CYCLICAL, DURATION 21DAYS
     Route: 065
     Dates: start: 20211129, end: 20211220
  5. CYCLOPHOSPHAMIDE [Interacting]
     Active Substance: CYCLOPHOSPHAMIDE
     Indication: Hodgkin^s disease
     Dosage: 2500MG, FREQUENCY TIME 1CYCLICAL, DURATION 21DAYS
     Route: 065
     Dates: start: 20211122, end: 20211213
  6. PROCARBAZINE [Interacting]
     Active Substance: PROCARBAZINE
     Indication: Hodgkin^s disease
     Dosage: 1400MG, FREQUENCY TIME 1CYCLICAL, DURATION 27DAYS
     Route: 065
     Dates: start: 20211122, end: 20211219

REACTIONS (4)
  - Acute respiratory distress syndrome [Recovered/Resolved]
  - Meningitis pneumococcal [Recovered/Resolved]
  - Febrile bone marrow aplasia [Recovered/Resolved]
  - Drug interaction [Recovered/Resolved]

NARRATIVE: CASE EVENT DATE: 20211224
